FAERS Safety Report 15014566 (Version 1)
Quarter: 2018Q2

REPORT INFORMATION
  Report Type: Spontaneous
  Country: CH (occurrence: CH)
  Receive Date: 20180615
  Receipt Date: 20180615
  Transmission Date: 20180711
  Serious: Yes (Other)
  Sender: FDA-Public Use
  Company Number: CH-ASTRAZENECA-2018SE76426

PATIENT
  Age: 70 Year
  Sex: Male

DRUGS (22)
  1. VENLAFAXINE [Suspect]
     Active Substance: VENLAFAXINE HYDROCHLORIDE
     Route: 048
  2. ASPIRIN CARDIO [Concomitant]
     Active Substance: ASPIRIN
  3. BELOC ZOK [Concomitant]
     Active Substance: METOPROLOL SUCCINATE
  4. TEMGESIC [Concomitant]
     Active Substance: BUPRENORPHINE HYDROCHLORIDE
  5. AMLODIPINE [Concomitant]
     Active Substance: AMLODIPINE BESYLATE
     Dates: start: 20180518
  6. ALDACTONE [Concomitant]
     Active Substance: SPIRONOLACTONE
     Dates: start: 20180514, end: 20180514
  7. NEXIUM [Suspect]
     Active Substance: ESOMEPRAZOLE MAGNESIUM
     Dosage: 40.0MG UNKNOWN
     Route: 048
  8. CALCIUM ACETATE. [Concomitant]
     Active Substance: CALCIUM ACETATE
     Dates: start: 20180516
  9. SERTRALINE [Concomitant]
     Active Substance: SERTRALINE HYDROCHLORIDE
  10. GUTRON [Concomitant]
     Active Substance: MIDODRINE
     Dates: start: 20180514
  11. CALCIPARINE [Concomitant]
     Active Substance: HEPARIN CALCIUM
     Dates: start: 20180516
  12. RENVELA [Concomitant]
     Active Substance: SEVELAMER CARBONATE
  13. DAFALGAN [Concomitant]
     Active Substance: ACETAMINOPHEN
     Dates: start: 20180515
  14. CEFAZOLIN [Concomitant]
     Active Substance: CEFAZOLIN
     Dates: start: 20180516
  15. MIMPARA [Concomitant]
     Active Substance: CINACALCET HYDROCHLORIDE
     Dates: start: 20180516
  16. INSULATARD HM [Concomitant]
     Active Substance: INSULIN HUMAN
  17. LASIX [Concomitant]
     Active Substance: FUROSEMIDE
     Dates: start: 20180514, end: 20180514
  18. LYRICA [Concomitant]
     Active Substance: PREGABALIN
  19. ROCALTROL [Concomitant]
     Active Substance: CALCITRIOL
     Dates: start: 20180516
  20. RESONIUM A [Concomitant]
     Active Substance: SODIUM POLYSTYRENE SULFONATE
     Dates: start: 20180523
  21. SERETIDE [Concomitant]
     Active Substance: FLUTICASONE PROPIONATE\SALMETEROL XINAFOATE
  22. PIPERACILLIN AND TAZOBACTAM [Concomitant]
     Active Substance: PIPERACILLIN SODIUM\TAZOBACTAM SODIUM
     Dates: start: 20180514, end: 20180515

REACTIONS (1)
  - Cholestatic liver injury [Recovering/Resolving]

NARRATIVE: CASE EVENT DATE: 20180515
